FAERS Safety Report 5409607-6 (Version None)
Quarter: 2007Q3

REPORT INFORMATION
  Report Type: 
  Country: None (occurrence: None)
  Receive Date: 20070807
  Receipt Date: 20070807
  Transmission Date: 20080115
  Serious: Yes (Life-Threatening, Hospitalization)
  Sender: FDA-Public Use
  Company Number: None

PATIENT
  Age: 65 Year
  Sex: Female

DRUGS (5)
  1. LISINOPRIL AND HYDROCHLOROTHIAZIDE [Suspect]
     Indication: HYPERTENSION
     Dosage: DAILY PO
     Route: 048
     Dates: start: 20070201, end: 20070203
  2. GEMFIBROZIL [Concomitant]
  3. NIACIN [Concomitant]
  4. FEMHRT [Concomitant]
  5. FISH OIL [Concomitant]

REACTIONS (3)
  - ANGIOEDEMA [None]
  - ENDOTRACHEAL INTUBATION COMPLICATION [None]
  - UPPER RESPIRATORY TRACT CONGESTION [None]
